FAERS Safety Report 8479602-1 (Version None)
Quarter: 2012Q2

REPORT INFORMATION
  Report Type: 
  Country: None (occurrence: None)
  Receive Date: 20120629
  Receipt Date: 20120618
  Transmission Date: 20120825
  Serious: Yes (Other)
  Sender: FDA-Public Use
  Company Number: JP-VERTEX PHARMACEUTICALS INC.-AE-2012-008476

PATIENT
  Age: 54 Year
  Sex: Male

DRUGS (5)
  1. REBETOL [Concomitant]
     Indication: HEPATITIS C
     Route: 048
     Dates: start: 20120515, end: 20120517
  2. REBETOL [Concomitant]
     Route: 048
     Dates: start: 20120521
  3. TELAVIC (TELAPREVIR) [Suspect]
     Indication: HEPATITIS C
     Route: 048
     Dates: start: 20120515, end: 20120517
  4. PEG-INTRON [Concomitant]
     Indication: HEPATITIS C
     Route: 058
     Dates: start: 20120515
  5. TELAVIC (TELAPREVIR) [Suspect]
     Route: 048
     Dates: start: 20120521

REACTIONS (1)
  - BLOOD CREATININE INCREASED [None]
